FAERS Safety Report 16931721 (Version 1)
Quarter: 2019Q4

REPORT INFORMATION
  Report Type: Spontaneous
  Country: US (occurrence: US)
  Receive Date: 20191017
  Receipt Date: 20191017
  Transmission Date: 20200122
  Serious: No
  Sender: FDA-Public Use
  Company Number: US-BAUSCH-BL-2019-057402

PATIENT
  Sex: Female

DRUGS (1)
  1. DUOBRII [Suspect]
     Active Substance: HALOBETASOL PROPIONATE\TAZAROTENE
     Indication: PRODUCT USED FOR UNKNOWN INDICATION
     Dosage: DISCONTINUED DUOBRII FOR 5 DAYS
     Route: 065

REACTIONS (3)
  - Application site irritation [Unknown]
  - Application site pain [Not Recovered/Not Resolved]
  - Application site pruritus [Not Recovered/Not Resolved]
